FAERS Safety Report 23345265 (Version 1)
Quarter: 2023Q4

REPORT INFORMATION
  Report Type: Report from Study
  Country: CO (occurrence: CO)
  Receive Date: 20231228
  Receipt Date: 20231228
  Transmission Date: 20240109
  Serious: Yes (Other)
  Sender: FDA-Public Use
  Company Number: CO-JNJFOC-20231256263

PATIENT
  Age: 68 Year
  Sex: Male
  Weight: 52 kg

DRUGS (1)
  1. APALUTAMIDE [Suspect]
     Active Substance: APALUTAMIDE
     Indication: Product used for unknown indication
     Dosage: RECENT DOSE WAS ADMINISTERED ON 28-SEP-2023.
     Route: 048
     Dates: start: 20220703

REACTIONS (1)
  - Orchidectomy [Recovering/Resolving]

NARRATIVE: CASE EVENT DATE: 20231124
